FAERS Safety Report 20835761 (Version 2)
Quarter: 2022Q2

REPORT INFORMATION
  Report Type: Spontaneous
  Country: US (occurrence: US)
  Receive Date: 20220516
  Receipt Date: 20220527
  Transmission Date: 20220721
  Serious: No
  Sender: FDA-Public Use
  Company Number: US-PFIZER INC-202200482302

PATIENT
  Age: 66 Year
  Sex: Male

DRUGS (1)
  1. XELJANZ XR [Suspect]
     Active Substance: TOFACITINIB CITRATE
     Indication: Rheumatoid arthritis
     Dosage: 11 MG, 1X/DAY
     Route: 048
     Dates: start: 202203, end: 20220517

REACTIONS (5)
  - Joint swelling [Recovering/Resolving]
  - Fatigue [Unknown]
  - Somnolence [Unknown]
  - Arthralgia [Unknown]
  - Therapy cessation [Unknown]
